FAERS Safety Report 18078996 (Version 1)
Quarter: 2020Q3

REPORT INFORMATION
  Report Type: Spontaneous
  Country: US (occurrence: US)
  Receive Date: 20200727
  Receipt Date: 20200727
  Transmission Date: 20201103
  Serious: No
  Sender: FDA-Public Use
  Company Number: None

PATIENT
  Sex: Female

DRUGS (1)
  1. HUMIRA [Suspect]
     Active Substance: ADALIMUMAB
     Indication: CROHN^S DISEASE
     Dosage: FREQUENCY: EVERY 14 DAYS
     Route: 059
     Dates: start: 201707

REACTIONS (3)
  - Hypersensitivity [None]
  - Throat irritation [None]
  - Sinus congestion [None]
